APPROVED DRUG PRODUCT: EXEM FOAM KIT
Active Ingredient: AIR POLYMER-TYPE A
Strength: 10ML
Dosage Form/Route: FOAM;INTRAUTERINE
Application: N212279 | Product #001
Applicant: GISKIT PHARMA BV
Approved: Nov 7, 2019 | RLD: Yes | RS: Yes | Type: RX

PATENTS:
Patent 9034300 | Expires: Oct 15, 2030
Patent 9259494 | Expires: May 4, 2035
Patent 9849199 | Expires: Feb 11, 2036